FAERS Safety Report 7778776-5 (Version None)
Quarter: 2011Q3

REPORT INFORMATION
  Report Type: 
  Country: None (occurrence: None)
  Receive Date: 20110926
  Receipt Date: 20110915
  Transmission Date: 20111222
  Serious: Yes (Hospitalization)
  Sender: FDA-Public Use
  Company Number: US-JNJFOC-20110611738

PATIENT
  Sex: Male
  Weight: 99.6 kg

DRUGS (4)
  1. REMICADE [Suspect]
     Indication: COLITIS ULCERATIVE
     Route: 042
     Dates: end: 20110501
  2. PENTASA [Concomitant]
  3. REMICADE [Suspect]
     Route: 042
     Dates: start: 20110822
  4. REMICADE [Suspect]
     Route: 042
     Dates: start: 20090101

REACTIONS (4)
  - COLITIS ULCERATIVE [None]
  - CHRONIC OBSTRUCTIVE PULMONARY DISEASE [None]
  - HAEMORRHAGIC ANAEMIA [None]
  - APPENDICECTOMY [None]
